FAERS Safety Report 7335500-8 (Version None)
Quarter: 2011Q1

REPORT INFORMATION
  Report Type: 
  Country: None (occurrence: None)
  Receive Date: 20110301
  Receipt Date: 20110301
  Transmission Date: 20110831
  Serious: Yes (Congenital Anomaly)
  Sender: FDA-Public Use
  Company Number: None

PATIENT
  Sex: Male
  Weight: 3.1752 kg

DRUGS (2)
  1. PROPOXYPHENE HCL [Suspect]
     Indication: JOINT INJURY
     Dosage: ONE OR TWO EVERY 8 HOURS PRN
     Dates: start: 20020501, end: 20021216
  2. PROPOXYPHENE HCL [Suspect]
     Indication: PAIN
     Dosage: ONE OR TWO EVERY 8 HOURS PRN
     Dates: start: 20020501, end: 20021216

REACTIONS (2)
  - CARDIAC DISORDER [None]
  - MATERNAL DRUGS AFFECTING FOETUS [None]
